FAERS Safety Report 17396482 (Version 1)
Quarter: 2020Q1

REPORT INFORMATION
  Report Type: Other
  Country: RU (occurrence: RU)
  Receive Date: 20200210
  Receipt Date: 20200210
  Transmission Date: 20200409
  Serious: Yes (Other)
  Sender: FDA-Public Use
  Company Number: RU-GLENMARK PHARMACEUTICALS-2020GMK045938

PATIENT
  Age: 51 Year
  Sex: Male

DRUGS (1)
  1. GLEVO [Suspect]
     Active Substance: LEVOFLOXACIN
     Indication: PRODUCT USED FOR UNKNOWN INDICATION
     Dosage: 500 MG, SINGLE
     Route: 048
     Dates: start: 20191120, end: 20191120

REACTIONS (3)
  - Swollen tongue [Recovering/Resolving]
  - Rash [Recovering/Resolving]
  - Urticaria [Recovering/Resolving]

NARRATIVE: CASE EVENT DATE: 20191120
